FAERS Safety Report 14362736 (Version 3)
Quarter: 2018Q1

REPORT INFORMATION
  Report Type: Report from Study
  Country: CA (occurrence: CA)
  Receive Date: 20180108
  Receipt Date: 20180219
  Transmission Date: 20180509
  Serious: Yes (Other)
  Sender: FDA-Public Use
  Company Number: CA-JNJFOC-20170926529

PATIENT
  Age: 46 Year
  Sex: Female
  Weight: 85 kg

DRUGS (6)
  1. DEXAMETHASONE. [Concomitant]
     Active Substance: DEXAMETHASONE
     Indication: PRODUCT USED FOR UNKNOWN INDICATION
     Dosage: DAY 1, 2
     Route: 048
  2. DARZALEX [Suspect]
     Active Substance: DARATUMUMAB
     Indication: PLASMA CELL MYELOMA
     Dosage: 400 MG STRENGTH
     Route: 042
     Dates: start: 20170824
  3. DARZALEX [Suspect]
     Active Substance: DARATUMUMAB
     Indication: PLASMA CELL MYELOMA
     Dosage: 100 MG STRENGTH
     Route: 042
     Dates: start: 20170823, end: 20180126
  4. PREDNISONE. [Concomitant]
     Active Substance: PREDNISONE
     Indication: PREMEDICATION
  5. DARZALEX [Suspect]
     Active Substance: DARATUMUMAB
     Indication: PLASMA CELL MYELOMA
     Dosage: STRENGTH-20 MG/ML
     Route: 042
  6. DEXAMETHASONE. [Concomitant]
     Active Substance: DEXAMETHASONE
     Indication: PRODUCT USED FOR UNKNOWN INDICATION
     Dosage: DAY 1,2 ,3
     Route: 048

REACTIONS (25)
  - Hemiparesis [Unknown]
  - Dyspnoea [Unknown]
  - Weight decreased [Unknown]
  - Headache [Recovering/Resolving]
  - Irritability [Unknown]
  - Skin tightness [Unknown]
  - Haemoglobin decreased [Unknown]
  - Palpitations [Unknown]
  - Formication [Unknown]
  - Thrombocytopenia [Unknown]
  - Visual impairment [Unknown]
  - Muscle strain [Unknown]
  - Infusion related reaction [Unknown]
  - Drug ineffective [Unknown]
  - Tremor [Unknown]
  - Arthralgia [Unknown]
  - Adverse drug reaction [Unknown]
  - Headache [Unknown]
  - Oedema peripheral [Unknown]
  - Diarrhoea [Unknown]
  - Pyrexia [Unknown]
  - Pneumonia [Recovering/Resolving]
  - Fatigue [Not Recovered/Not Resolved]
  - Muscle spasms [Recovered/Resolved]
  - Nasopharyngitis [Not Recovered/Not Resolved]

NARRATIVE: CASE EVENT DATE: 201711
